FAERS Safety Report 23959120 (Version 1)
Quarter: 2024Q2

REPORT INFORMATION
  Report Type: Spontaneous
  Country: GB (occurrence: GB)
  Receive Date: 20240611
  Receipt Date: 20240611
  Transmission Date: 20240715
  Serious: Yes (Hospitalization)
  Sender: FDA-Public Use
  Company Number: GB-CHEPLA-2024007087

PATIENT
  Sex: Female
  Weight: 47.799 kg

DRUGS (1)
  1. OLANZAPINE [Suspect]
     Active Substance: OLANZAPINE
     Dosage: MONTHLY
     Route: 030
     Dates: start: 202401

REACTIONS (2)
  - Abscess [Recovered/Resolved]
  - Device connection issue [Recovered/Resolved]
